FAERS Safety Report 8273110-9 (Version None)
Quarter: 2012Q2

REPORT INFORMATION
  Report Type: 
  Country: None (occurrence: None)
  Receive Date: 20120411
  Receipt Date: 20120403
  Transmission Date: 20120825
  Serious: Yes (Other)
  Sender: FDA-Public Use
  Company Number: GB-JNJFOC-20120403306

PATIENT

DRUGS (32)
  1. VINCRISTINE [Suspect]
     Route: 042
  2. CHLORAMBUCIL [Suspect]
     Indication: HODGKIN'S DISEASE
     Route: 048
  3. CHLORAMBUCIL [Suspect]
     Route: 048
  4. VINBLASTINE SULFATE [Suspect]
     Route: 042
  5. PROCARBAZINE HYDROCHLORIDE [Suspect]
     Route: 048
  6. DOXORUBICIN HCL [Suspect]
     Route: 042
  7. BLEOMYCIN SULFATE [Suspect]
     Route: 042
  8. BLEOMYCIN SULFATE [Suspect]
     Route: 042
  9. DACARBAZINE [Suspect]
     Indication: HODGKIN'S DISEASE
     Route: 042
  10. DOXORUBICIN HCL [Suspect]
     Indication: HODGKIN'S DISEASE
     Route: 042
  11. DOXORUBICIN HCL [Suspect]
     Route: 042
  12. DACARBAZINE [Suspect]
     Route: 042
  13. PROCARBAZINE HYDROCHLORIDE [Suspect]
     Route: 048
  14. PROCARBAZINE HYDROCHLORIDE [Suspect]
     Route: 048
  15. PREDNISOLONE [Suspect]
     Indication: HODGKIN'S DISEASE
     Route: 048
  16. PREDNISOLONE [Suspect]
     Route: 048
  17. VINCRISTINE [Suspect]
     Route: 042
  18. PREDNISOLONE [Suspect]
     Route: 048
  19. DOXORUBICIN HCL [Suspect]
     Route: 042
  20. BLEOMYCIN SULFATE [Suspect]
     Route: 042
  21. VINCRISTINE [Suspect]
     Indication: HODGKIN'S DISEASE
     Route: 042
  22. DACARBAZINE [Suspect]
     Route: 042
  23. CHLORAMBUCIL [Suspect]
     Route: 048
  24. CHLORAMBUCIL [Suspect]
     Route: 048
  25. VINBLASTINE SULFATE [Suspect]
     Route: 042
  26. BLEOMYCIN SULFATE [Suspect]
     Indication: HODGKIN'S DISEASE
     Route: 042
  27. VINCRISTINE [Suspect]
     Route: 042
  28. DACARBAZINE [Suspect]
     Route: 042
  29. VINBLASTINE SULFATE [Suspect]
     Indication: HODGKIN'S DISEASE
     Route: 042
  30. VINBLASTINE SULFATE [Suspect]
     Route: 042
  31. PREDNISOLONE [Suspect]
     Route: 048
  32. PROCARBAZINE HYDROCHLORIDE [Suspect]
     Indication: HODGKIN'S DISEASE
     Route: 048

REACTIONS (1)
  - CONVULSION [None]
